FAERS Safety Report 17351281 (Version 1)
Quarter: 2020Q1

REPORT INFORMATION
  Report Type: Spontaneous
  Country: FR (occurrence: FR)
  Receive Date: 20200130
  Receipt Date: 20200130
  Transmission Date: 20200409
  Serious: Yes (Hospitalization)
  Sender: FDA-Public Use
  Company Number: FR-TEVA-2020-FR-1177074

PATIENT
  Age: 2 Year
  Sex: Female

DRUGS (1)
  1. DOXORUBICINE [Suspect]
     Active Substance: DOXORUBICIN
     Indication: RETROPERITONEAL NEOPLASM
     Route: 042
     Dates: start: 20161224, end: 20170522

REACTIONS (3)
  - Pulmonary oedema [Recovered/Resolved]
  - Cardiac failure [Recovered/Resolved]
  - Congestive cardiomyopathy [Recovered/Resolved]

NARRATIVE: CASE EVENT DATE: 201707
